FAERS Safety Report 17508046 (Version 1)
Quarter: 2020Q1

REPORT INFORMATION
  Report Type: Spontaneous
  Country: GB (occurrence: GB)
  Receive Date: 20200306
  Receipt Date: 20200306
  Transmission Date: 20200409
  Serious: Yes (Other)
  Sender: FDA-Public Use
  Company Number: GB-TEVA-2020-GB-1195073

PATIENT
  Age: 54 Year
  Sex: Male

DRUGS (2)
  1. AZATHIOPRINE. [Interacting]
     Active Substance: AZATHIOPRINE
     Dosage: 200 MG 1 DAYS
     Route: 048
  2. ALLOPURINOL. [Suspect]
     Active Substance: ALLOPURINOL
     Route: 065

REACTIONS (2)
  - Bone marrow failure [Unknown]
  - Drug interaction [Unknown]

NARRATIVE: CASE EVENT DATE: 20190920
